FAERS Safety Report 11662568 (Version 1)
Quarter: 2015Q4

REPORT INFORMATION
  Report Type: Spontaneous
  Country: US (occurrence: US)
  Receive Date: 20151027
  Receipt Date: 20151027
  Transmission Date: 20160304
  Serious: No
  Sender: FDA-Public Use
  Company Number: US-MEDA-2013120026

PATIENT
  Sex: Male

DRUGS (1)
  1. ASTEPRO [Suspect]
     Active Substance: AZELASTINE HYDROCHLORIDE
     Indication: NASOPHARYNGITIS

REACTIONS (2)
  - Product use issue [Recovered/Resolved]
  - Tinnitus [Not Recovered/Not Resolved]
